FAERS Safety Report 7178212-6 (Version None)
Quarter: 2010Q4

REPORT INFORMATION
  Report Type: 
  Country: None (occurrence: None)
  Receive Date: 20101220
  Receipt Date: 20101210
  Transmission Date: 20110411
  Serious: Yes (Hospitalization)
  Sender: FDA-Public Use
  Company Number: CHPA2010US19049

PATIENT
  Age: 70 Year
  Sex: Female
  Weight: 102.4 kg

DRUGS (1)
  1. MAALOX ADV MAXIMUM STRENGTH ANTACID/ANTIGAS (NCH) [Suspect]
     Indication: ABDOMINAL DISCOMFORT
     Dosage: UNK, UNK
     Route: 048
     Dates: start: 20090101, end: 20090101

REACTIONS (2)
  - FAECES DISCOLOURED [None]
  - GASTRIC DISORDER [None]
